FAERS Safety Report 4273690-4 (Version None)
Quarter: 2004Q1

REPORT INFORMATION
  Report Type: 
  Country: None (occurrence: None)
  Receive Date: 20040119
  Receipt Date: 20031024
  Transmission Date: 20041129
  Serious: Yes (Other)
  Sender: FDA-Public Use
  Company Number: US-ROCHE-350095

PATIENT
  Age: 54 Year
  Sex: Male
  Weight: 86.2 kg

DRUGS (2)
  1. ROFERON-A [Suspect]
     Indication: DRUG USE FOR UNKNOWN INDICATION
     Route: 065
  2. RIBAVIRIN [Concomitant]

REACTIONS (2)
  - BRADYCARDIA [None]
  - CARDIOMEGALY [None]
